FAERS Safety Report 20463277 (Version 2)
Quarter: 2022Q1

REPORT INFORMATION
  Report Type: Report from Study
  Country: US (occurrence: US)
  Receive Date: 20220211
  Receipt Date: 20220301
  Transmission Date: 20220423
  Serious: Yes (Hospitalization)
  Sender: FDA-Public Use
  Company Number: US-HORIZON THERAPEUTICS-HZN-2022-001066

PATIENT

DRUGS (1)
  1. RAVICTI [Suspect]
     Active Substance: GLYCEROL PHENYLBUTYRATE
     Indication: Ornithine transcarbamoylase deficiency
     Dosage: 1ST DOSE
     Route: 065
     Dates: start: 20220125, end: 20220125

REACTIONS (4)
  - Feeling drunk [Unknown]
  - Dizziness [Unknown]
  - Abdominal discomfort [Unknown]
  - Ammonia increased [Unknown]

NARRATIVE: CASE EVENT DATE: 20220125
